FAERS Safety Report 6747900-5 (Version None)
Quarter: 2010Q2

REPORT INFORMATION
  Report Type: 
  Country: None (occurrence: None)
  Receive Date: 20100528
  Receipt Date: 20100521
  Transmission Date: 20101027
  Serious: Yes (Hospitalization)
  Sender: FDA-Public Use
  Company Number: JP-AMGEN-US399855

PATIENT
  Age: 29 Year
  Sex: Female

DRUGS (3)
  1. ENBREL [Suspect]
     Indication: RHEUMATOID ARTHRITIS
     Dosage: UNSPECIFIED
     Route: 058
  2. PREDNISONE TAB [Concomitant]
     Dates: start: 20091215, end: 20100331
  3. ACETAMINOPHEN [Concomitant]
     Dates: start: 20091215, end: 20100331

REACTIONS (4)
  - DRUG EXPOSURE DURING PREGNANCY [None]
  - INTRAUTERINE INFECTION [None]
  - PREMATURE LABOUR [None]
  - THREATENED LABOUR [None]
